FAERS Safety Report 7014670-5 (Version None)
Quarter: 2010Q3

REPORT INFORMATION
  Report Type: 
  Country: None (occurrence: None)
  Receive Date: 20100927
  Receipt Date: 20100915
  Transmission Date: 20110219
  Serious: Yes (Other)
  Sender: FDA-Public Use
  Company Number: US-JNJFOC-20100905699

PATIENT
  Sex: Female
  Weight: 99.79 kg

DRUGS (4)
  1. REMICADE [Suspect]
     Indication: PSORIASIS
     Route: 042
  2. ALEVE (CAPLET) [Interacting]
     Indication: PAIN
  3. MOTRIN [Interacting]
  4. MOTRIN [Interacting]
     Indication: PAIN

REACTIONS (5)
  - DRUG INTERACTION [None]
  - EPISTAXIS [None]
  - ESCHERICHIA INFECTION [None]
  - FEELING ABNORMAL [None]
  - THERAPEUTIC RESPONSE DECREASED [None]
